FAERS Safety Report 21636939 (Version 2)
Quarter: 2022Q4

REPORT INFORMATION
  Report Type: Spontaneous
  Country: JP (occurrence: JP)
  Receive Date: 20221124
  Receipt Date: 20221223
  Transmission Date: 20230113
  Serious: Yes (Hospitalization)
  Sender: FDA-Public Use
  Company Number: JP-002147023-NVSJ2022JP101590

PATIENT
  Age: 44 Year
  Sex: Female

DRUGS (2)
  1. ILARIS [Suspect]
     Active Substance: CANAKINUMAB
     Indication: Familial mediterranean fever
     Dosage: 150 MG
     Route: 058
     Dates: start: 20210716, end: 20220428
  2. ILARIS [Suspect]
     Active Substance: CANAKINUMAB
     Dosage: 300 MG
     Route: 058
     Dates: start: 20220525, end: 20220915

REACTIONS (3)
  - Inflammation [Not Recovered/Not Resolved]
  - Enterocolitis [Not Recovered/Not Resolved]
  - Concomitant disease aggravated [Not Recovered/Not Resolved]

NARRATIVE: CASE EVENT DATE: 20210723
